FAERS Safety Report 12266829 (Version 2)
Quarter: 2016Q2

REPORT INFORMATION
  Report Type: Spontaneous
  Country: JP (occurrence: JP)
  Receive Date: 20160414
  Receipt Date: 20160420
  Transmission Date: 20160815
  Serious: Yes (Other)
  Sender: FDA-Public Use
  Company Number: JP-SA-2016SA070116

PATIENT
  Age: 67 Year
  Sex: Male

DRUGS (2)
  1. BCG FOR IMMUNOTHERAPY [Suspect]
     Active Substance: BACILLUS CALMETTE-GUERIN ANTIGEN, UNSPECIFIED SUBSTRAIN
     Indication: BLADDER CANCER
     Route: 043
  2. BCG FOR IMMUNOTHERAPY [Suspect]
     Active Substance: BACILLUS CALMETTE-GUERIN ANTIGEN, UNSPECIFIED SUBSTRAIN
     Indication: BLADDER CANCER
     Route: 043

REACTIONS (7)
  - Septic shock [Unknown]
  - Cellulitis [Unknown]
  - Mycobacterium tuberculosis complex test positive [Unknown]
  - Interferon gamma release assay [Unknown]
  - Culture positive [Unknown]
  - Polymerase chain reaction positive [Unknown]
  - Disseminated Bacillus Calmette-Guerin infection [Unknown]
